FAERS Safety Report 4983001-4 (Version None)
Quarter: 2006Q2

REPORT INFORMATION
  Report Type: 
  Country: None (occurrence: None)
  Receive Date: 20060420
  Receipt Date: 20060410
  Transmission Date: 20061013
  Serious: Yes (Hospitalization, Other)
  Sender: FDA-Public Use
  Company Number: 2006049773

PATIENT
  Sex: Female

DRUGS (1)
  1. ZOLOFT [Suspect]
     Indication: ILL-DEFINED DISORDER
     Dosage: 1 IN 1 D, ORAL
     Route: 048
     Dates: start: 20000101, end: 20000101

REACTIONS (2)
  - DRUG HYPERSENSITIVITY [None]
  - FEELING HOT [None]
